FAERS Safety Report 17751152 (Version 1)
Quarter: 2020Q2

REPORT INFORMATION
  Report Type: Spontaneous
  Country: US (occurrence: US)
  Receive Date: 20200506
  Receipt Date: 20200506
  Transmission Date: 20200714
  Serious: Yes (Other)
  Sender: FDA-Public Use
  Company Number: US-ROCHE-2582493

PATIENT
  Sex: Female
  Weight: 79.6 kg

DRUGS (5)
  1. AVASTIN [Suspect]
     Active Substance: BEVACIZUMAB
     Indication: OVARIAN CANCER
     Dosage: 1100 OR 1200 MG EVERY 3 WEEKS
     Route: 042
     Dates: start: 20190829
  2. CATHFLO ACTIVASE [Suspect]
     Active Substance: ALTEPLASE
     Route: 050
     Dates: start: 20200317
  3. CATHFLO ACTIVASE [Suspect]
     Active Substance: ALTEPLASE
     Route: 050
     Dates: start: 20200320
  4. CATHFLO ACTIVASE [Suspect]
     Active Substance: ALTEPLASE
     Indication: DEVICE OCCLUSION
     Route: 050
     Dates: start: 20200225
  5. CATHFLO ACTIVASE [Suspect]
     Active Substance: ALTEPLASE
     Route: 050
     Dates: start: 20200407

REACTIONS (3)
  - Device related thrombosis [Unknown]
  - Off label use [Unknown]
  - Weight increased [Unknown]
